FAERS Safety Report 5621734-7 (Version None)
Quarter: 2008Q1

REPORT INFORMATION
  Report Type: 
  Country: None (occurrence: None)
  Receive Date: 20080211
  Receipt Date: 20080204
  Transmission Date: 20080703
  Serious: Yes (Other)
  Sender: FDA-Public Use
  Company Number: PHBS2008GT01800

PATIENT
  Age: 62 Year
  Sex: Female

DRUGS (4)
  1. DIOVAN HCT [Suspect]
     Indication: HYPERTENSION
     Dosage: VALS 160 / HCT 12.5 MG/DAY
     Route: 048
     Dates: start: 20070801
  2. DILANTIN [Concomitant]
     Dosage: 300 MG/D
     Route: 048
  3. GABICTAL [Concomitant]
     Dosage: 400 MG/DAY
     Route: 048
  4. METFORAL [Concomitant]
     Dosage: 850 MG, TID
     Route: 048

REACTIONS (8)
  - ATRIOVENTRICULAR BLOCK COMPLETE [None]
  - BLOOD PRESSURE INADEQUATELY CONTROLLED [None]
  - CARDIAC PACEMAKER INSERTION [None]
  - DIZZINESS [None]
  - ELECTROCARDIOGRAM ABNORMAL [None]
  - HEADACHE [None]
  - HYPOTHYROIDISM [None]
  - SUPRAVENTRICULAR EXTRASYSTOLES [None]
